FAERS Safety Report 9866058 (Version 2)
Quarter: 2014Q1

REPORT INFORMATION
  Report Type: Spontaneous
  Country: CA (occurrence: CA)
  Receive Date: 20140203
  Receipt Date: 20140211
  Transmission Date: 20141002
  Serious: Yes (Hospitalization, Other)
  Sender: FDA-Public Use
  Company Number: CA-AMGEN-CANSP2014005972

PATIENT
  Age: 57 Year
  Sex: Female

DRUGS (1)
  1. ENBREL [Suspect]
     Indication: PSORIATIC ARTHROPATHY
     Dosage: 50 MG, UNK
     Route: 065
     Dates: start: 20130821, end: 201311

REACTIONS (9)
  - Nausea [Recovered/Resolved]
  - Vomiting [Recovered/Resolved]
  - Systemic lupus erythematosus [Unknown]
  - Inflammation [Unknown]
  - Renal failure acute [Unknown]
  - Demyelination [Unknown]
  - Dehydration [Unknown]
  - Arthritis [Unknown]
  - Crohn^s disease [Unknown]
